FAERS Safety Report 5777687-4 (Version None)
Quarter: 2008Q2

REPORT INFORMATION
  Report Type: 
  Country: None (occurrence: None)
  Receive Date: 20080618
  Receipt Date: 20080606
  Transmission Date: 20081010
  Serious: Yes (Other)
  Sender: FDA-Public Use
  Company Number: AT-PFIZER INC-2008046372

PATIENT
  Sex: Female
  Weight: 65 kg

DRUGS (1)
  1. CLINDAMYCIN HCL [Suspect]
     Indication: ADNEXITIS
     Route: 048
     Dates: start: 20080520, end: 20080525

REACTIONS (7)
  - APPLICATION SITE OEDEMA [None]
  - APPLICATION SITE PAIN [None]
  - APPLICATION SITE SWELLING [None]
  - FIBRIN ABNORMAL [None]
  - ORAL DISORDER [None]
  - PHARMACEUTICAL PRODUCT COMPLAINT [None]
  - SKIN FIBROSIS [None]
